FAERS Safety Report 4674916-5 (Version None)
Quarter: 2005Q2

REPORT INFORMATION
  Report Type: 
  Country: None (occurrence: None)
  Receive Date: 20050524
  Receipt Date: 20050510
  Transmission Date: 20051028
  Serious: Yes (Hospitalization)
  Sender: FDA-Public Use
  Company Number: 2005-00196

PATIENT
  Age: 60 Year
  Sex: Male

DRUGS (1)
  1. IMMUCYST [Suspect]
     Indication: BLADDER CANCER
     Dosage: 81.0 MG, I.VES; BLADDER
     Dates: start: 20040716, end: 20041029

REACTIONS (6)
  - BLADDER CONSTRICTION [None]
  - BLOOD GLUCOSE INCREASED [None]
  - HAEMATOCRIT DECREASED [None]
  - HAEMOGLOBIN DECREASED [None]
  - POLLAKIURIA [None]
  - RED BLOOD CELL COUNT DECREASED [None]
